FAERS Safety Report 8997847 (Version 2)
Quarter: 2013Q1

REPORT INFORMATION
  Report Type: Spontaneous
  Country: TR (occurrence: TR)
  Receive Date: 20130104
  Receipt Date: 20130122
  Transmission Date: 20140127
  Serious: Yes (Disabling)
  Sender: FDA-Public Use
  Company Number: TR-GLAXOSMITHKLINE-B0856533A

PATIENT
  Age: 42 Year
  Sex: Female
  Weight: 88 kg

DRUGS (2)
  1. TYVERB [Suspect]
     Indication: BREAST CANCER
     Dosage: 1250MG PER DAY
     Route: 048
     Dates: start: 20100715
  2. XELODA [Concomitant]
     Indication: BREAST CANCER
     Dosage: 2000MG PER DAY
     Route: 048
     Dates: start: 20100715

REACTIONS (4)
  - Nasal septum perforation [Recovered/Resolved]
  - Epistaxis [Unknown]
  - Gingival bleeding [Unknown]
  - Scar [Unknown]
